FAERS Safety Report 4272483-1 (Version None)
Quarter: 2004Q1

REPORT INFORMATION
  Report Type: 
  Country: None (occurrence: None)
  Receive Date: 20040115
  Receipt Date: 20031218
  Transmission Date: 20041129
  Serious: Yes (Disabling)
  Sender: FDA-Public Use
  Company Number: WAES 0312USA02108

PATIENT
  Age: 85 Year
  Sex: Male

DRUGS (2)
  1. PROSCAR [Suspect]
     Indication: BENIGN PROSTATIC HYPERPLASIA
     Route: 048
     Dates: start: 19950101
  2. VITAMIN E [Concomitant]

REACTIONS (3)
  - ANAEMIA [None]
  - LYMPHADENOPATHY [None]
  - RENAL CANCER METASTATIC [None]
